FAERS Safety Report 9616636 (Version 2)
Quarter: 2013Q4

REPORT INFORMATION
  Report Type: Report from Study
  Country: NL (occurrence: NL)
  Receive Date: 20131011
  Receipt Date: 20131106
  Transmission Date: 20140711
  Serious: Yes (Hospitalization)
  Sender: FDA-Public Use
  Company Number: PHHY2013NL114302

PATIENT
  Age: 70 Year
  Sex: Male

DRUGS (6)
  1. ZOMETA [Suspect]
     Indication: METASTASES TO BONE
     Dosage: 4 MG/100ML ONCE 4 WEEKS
     Route: 042
     Dates: start: 201205
  2. ZOMETA [Suspect]
     Dosage: 4 MG/100ML ONCE 4 WEEKS
     Route: 042
     Dates: start: 20121203
  3. ZOMETA [Suspect]
     Dosage: 4 MG/100ML ONCE 4 WEEKS
     Route: 042
     Dates: start: 20130912
  4. DOCETAXEL [Concomitant]
     Indication: CHEMOTHERAPY
     Dosage: UNK UKN, UNK
     Dates: start: 20131023
  5. PREDNISOLONE [Concomitant]
     Dosage: 5 MG, BID
     Dates: start: 20131023
  6. METOPROLOL [Concomitant]
     Dosage: 50 MG, QD
     Dates: start: 20131023

REACTIONS (3)
  - Cellulitis [Recovered/Resolved]
  - Oedema peripheral [Recovering/Resolving]
  - Erythema [Recovering/Resolving]
